FAERS Safety Report 8048574-6 (Version None)
Quarter: 2012Q1

REPORT INFORMATION
  Report Type: 
  Country: None (occurrence: None)
  Receive Date: 20120117
  Receipt Date: 20120109
  Transmission Date: 20120608
  Serious: Yes (Hospitalization)
  Sender: FDA-Public Use
  Company Number: IT-BRISTOL-MYERS SQUIBB COMPANY-16295719

PATIENT
  Age: 76 Year
  Sex: Female

DRUGS (10)
  1. GLUCOPHAGE [Suspect]
     Indication: TYPE 2 DIABETES MELLITUS
     Route: 048
     Dates: start: 20110401, end: 20110705
  2. NORVASC [Concomitant]
  3. DONEPEZIL HCL [Concomitant]
  4. GLYBURIDE [Suspect]
     Indication: TYPE 2 DIABETES MELLITUS
     Dosage: 1DF:1,5U, 5MG/500MG
     Route: 048
     Dates: start: 20070401, end: 20110705
  5. ATORVASTATIN CALCIUM [Concomitant]
  6. ASPIRIN [Concomitant]
  7. BISOPROLOL FUMARATE [Concomitant]
  8. CANDESARTAN CILEXETIL [Concomitant]
  9. CANDESARTAN CILEXETIL [Concomitant]
  10. MEMANTINE HYDROCHLORIDE [Concomitant]

REACTIONS (4)
  - BRADYPHRENIA [None]
  - CONFUSIONAL STATE [None]
  - HYPOGLYCAEMIA [None]
  - BRADYKINESIA [None]
